FAERS Safety Report 8529041 (Version 2)
Quarter: 2013Q1

REPORT INFORMATION
  Report Type: Spontaneous
  Country: US (occurrence: US)
  Receive Date: 20120425
  Receipt Date: 20130301
  Transmission Date: 20140127
  Serious: Yes (Hospitalization)
  Sender: FDA-Public Use
  Company Number: US-VERTEX PHARMACEUTICALS INC.-AE-2012-005429

PATIENT
  Age: 67 Year
  Sex: Male

DRUGS (8)
  1. INCIVEK [Suspect]
     Indication: HEPATITIS C
     Dosage: 750 MG, TID
     Route: 048
  2. INCIVEK [Suspect]
     Dosage: 750 MG, TID
     Route: 048
  3. PEGASYS [Suspect]
     Indication: HEPATITIS C
     Dosage: 180 ?G, QW
     Route: 058
  4. PEGASYS [Suspect]
     Dosage: 90 ?G, QW
     Route: 058
  5. RIBAVIRIN [Suspect]
     Indication: HEPATITIS C
     Dosage: 1000 MG, QD
     Route: 048
  6. RIBAVIRIN [Suspect]
     Dosage: 800 MG, QD
     Route: 048
  7. HYDROCHLOROTHIAZIDE [Concomitant]
     Dosage: 25 MG, QD
  8. LISINOPRIL [Concomitant]
     Dosage: 10 MG, QD

REACTIONS (1)
  - Pancreatitis [Recovered/Resolved]
